FAERS Safety Report 17527617 (Version 1)
Quarter: 2020Q1

REPORT INFORMATION
  Report Type: Spontaneous
  Country: US (occurrence: US)
  Receive Date: 20200311
  Receipt Date: 20200311
  Transmission Date: 20200409
  Serious: No
  Sender: FDA-Public Use
  Company Number: US-JNJFOC-20200234282

PATIENT
  Sex: Female

DRUGS (2)
  1. TYLENOL WITH CODEINE [Suspect]
     Active Substance: ACETAMINOPHEN\CODEINE PHOSPHATE
     Indication: ARTHRITIS
     Dosage: MAY TAKE IT FOR A WEEK OR AS NEEDED
     Route: 065
  2. TYLENOL WITH CODEINE [Suspect]
     Active Substance: ACETAMINOPHEN\CODEINE PHOSPHATE
     Dosage: MAY TAKE IT FOR A WEEK OR AS NEEDED
     Route: 065

REACTIONS (2)
  - Product dispensing error [Unknown]
  - Expired product administered [Unknown]
